FAERS Safety Report 9184226 (Version 1)
Quarter: 2013Q1

REPORT INFORMATION
  Report Type: Spontaneous
  Country: US (occurrence: US)
  Receive Date: 20130322
  Receipt Date: 20130322
  Transmission Date: 20140127
  Serious: Yes (Other)
  Sender: FDA-Public Use
  Company Number: US-BRISTOL-MYERS SQUIBB COMPANY-16468290

PATIENT
  Age: 69 Year
  Sex: Female

DRUGS (2)
  1. ERBITUX [Suspect]
     Indication: COLON CANCER
     Dosage: 6 TREATMENTS
  2. DOXYCYCLINE [Concomitant]

REACTIONS (6)
  - Dyspnoea [Unknown]
  - Blood magnesium decreased [Unknown]
  - Skin exfoliation [Unknown]
  - Rash [Recovered/Resolved]
  - Acne [Unknown]
  - Hypersensitivity [Unknown]
